FAERS Safety Report 4587414-4 (Version None)
Quarter: 2005Q1

REPORT INFORMATION
  Report Type: 
  Country: None (occurrence: None)
  Receive Date: 20050218
  Receipt Date: 20050208
  Transmission Date: 20050727
  Serious: Yes (Death, Hospitalization)
  Sender: FDA-Public Use
  Company Number: EMADSS2002006948

PATIENT
  Sex: Female

DRUGS (17)
  1. REMICADE [Suspect]
     Indication: RHEUMATOID ARTHRITIS
     Route: 042
  2. METHOTREXATE [Concomitant]
     Indication: RHEUMATOID ARTHRITIS
     Route: 065
     Dates: start: 20010420
  3. FOLIC ACID [Concomitant]
     Indication: DRUG USE FOR UNKNOWN INDICATION
     Route: 065
     Dates: start: 20010420
  4. SPIRONOLACTONE [Concomitant]
  5. LASIX [Concomitant]
  6. ISONIAZID [Concomitant]
     Dosage: 300MGL
  7. ETHAMBUTOL HCL [Concomitant]
  8. RIFAMPICIN [Concomitant]
  9. PYRIDOXINE HCL [Concomitant]
  10. SERESTA [Concomitant]
  11. PREDNISONE [Concomitant]
  12. LEVOFLOXACINE [Concomitant]
  13. ENALAPRIL MALEATE [Concomitant]
  14. NAPROSYN [Concomitant]
  15. NADROPARINE [Concomitant]
  16. LOSARTAN POTASSIUM [Concomitant]
  17. VALACYCLOVIR HCL [Concomitant]

REACTIONS (14)
  - ABSCESS LIMB [None]
  - ASCITES [None]
  - BRONCHOPULMONARY ASPERGILLOSIS [None]
  - COAGULOPATHY [None]
  - DISSEMINATED TUBERCULOSIS [None]
  - HEPATIC FAILURE [None]
  - HERPES SIMPLEX [None]
  - HYPONATRAEMIA [None]
  - LEUKOPENIA [None]
  - MENINGITIS TUBERCULOUS [None]
  - NEUROPATHY [None]
  - PLEURAL EFFUSION [None]
  - SEPSIS [None]
  - URINARY TRACT INFECTION [None]
